FAERS Safety Report 4889314-9 (Version None)
Quarter: 2006Q1

REPORT INFORMATION
  Report Type: 
  Country: None (occurrence: None)
  Receive Date: 20060120
  Receipt Date: 20060120
  Transmission Date: 20060701
  Serious: Yes (Life-Threatening)
  Sender: FDA-Public Use
  Company Number: None

PATIENT
  Age: 50 Year
  Sex: Male
  Weight: 50 kg

DRUGS (13)
  1. LAMOTRIGINE [Suspect]
     Indication: CONVULSION
     Dosage: 200MG  Q12H  PO
     Route: 048
     Dates: start: 20050104, end: 20060107
  2. CLONAZEPAM [Concomitant]
  3. METOCLOPRAMIDE [Concomitant]
  4. CALCIUM GLUCONATE [Concomitant]
  5. PANTOPRAZOLE [Concomitant]
  6. LEVOFLOXACIN [Concomitant]
  7. CALCITONIN [Concomitant]
  8. PIPERACILLIN/TAZOBACTAM [Concomitant]
  9. DIPHENHYDRAMINE [Concomitant]
  10. ENOXAPARIN SODIUM [Concomitant]
  11. INSULIN [Concomitant]
  12. ACETAMINOPHEN [Concomitant]
  13. HYDROCODONE BITARTRATE [Concomitant]

REACTIONS (2)
  - BLOOD CREATINE PHOSPHOKINASE INCREASED [None]
  - RHABDOMYOLYSIS [None]
